FAERS Safety Report 7357311-X (Version None)
Quarter: 2011Q1

REPORT INFORMATION
  Report Type: 
  Country: None (occurrence: None)
  Receive Date: 20110308
  Receipt Date: 20110223
  Transmission Date: 20110831
  Serious: Yes (Other)
  Sender: FDA-Public Use
  Company Number: IMP_05356_2011

PATIENT
  Sex: Female
  Weight: 58.9676 kg

DRUGS (1)
  1. BUPROPION HCL [Suspect]
     Indication: DEPRESSION
     Dosage: 300 MG QD, ORAL
     Route: 048
     Dates: start: 20101124, end: 20110101

REACTIONS (4)
  - SUICIDAL IDEATION [None]
  - PRODUCT SUBSTITUTION ISSUE [None]
  - MANIA [None]
  - DEPRESSION [None]
